FAERS Safety Report 20573904 (Version 5)
Quarter: 2022Q2

REPORT INFORMATION
  Report Type: Spontaneous
  Country: US (occurrence: US)
  Receive Date: 20220309
  Receipt Date: 20220506
  Transmission Date: 20220720
  Serious: Yes (Death, Hospitalization)
  Sender: FDA-Public Use
  Company Number: US-THERATECHNOLOGIES INC.-2022-THE-IBA-000033

PATIENT
  Sex: Female
  Weight: 104.31 kg

DRUGS (10)
  1. TROGARZO [Suspect]
     Active Substance: IBALIZUMAB-UIYK
     Indication: HIV infection
     Dosage: 2000 MG, SINGLE
     Route: 042
     Dates: start: 202105
  2. TROGARZO [Suspect]
     Active Substance: IBALIZUMAB-UIYK
     Dosage: 800 MG EVERY 2 WEEKS
     Route: 042
     Dates: start: 202104
  3. TROGARZO [Suspect]
     Active Substance: IBALIZUMAB-UIYK
     Dosage: 800 MG EVERY 14 DAYS
     Route: 042
     Dates: start: 20211130, end: 202203
  4. GABAPENTIN [Concomitant]
     Active Substance: GABAPENTIN
     Indication: Pain
     Dosage: 400 MG, QD
     Route: 048
     Dates: start: 202111, end: 202204
  5. ELIQUIS [Concomitant]
     Active Substance: APIXABAN
     Indication: Endocarditis
     Dosage: 2.5 MG, BID
     Route: 048
     Dates: start: 202002, end: 202204
  6. PREZCOBIX [Concomitant]
     Active Substance: COBICISTAT\DARUNAVIR ETHANOLATE
     Indication: HIV infection
     Dosage: 800-150 MG, QD
     Route: 048
     Dates: start: 201809, end: 202204
  7. PIFELTRO [Concomitant]
     Active Substance: DORAVIRINE
     Indication: HIV infection
     Dosage: 100 MG, QD
     Route: 048
     Dates: start: 202009, end: 202204
  8. RUKOBIA [Concomitant]
     Active Substance: FOSTEMSAVIR TROMETHAMINE
     Indication: HIV infection
     Dosage: 600 MG, BID
     Route: 048
     Dates: start: 202009, end: 202204
  9. VALTREX [Concomitant]
     Active Substance: VALACYCLOVIR HYDROCHLORIDE
     Indication: Herpes simplex
     Dosage: 500 MG, QD
     Route: 048
     Dates: start: 202012, end: 202204
  10. CLARITIN [Concomitant]
     Active Substance: LORATADINE
     Indication: Rhinitis allergic
     Dosage: 16 MG, QD
     Route: 048
     Dates: start: 202009, end: 202204

REACTIONS (3)
  - Death [Fatal]
  - Sepsis [Unknown]
  - Product dose omission issue [Unknown]
